FAERS Safety Report 5036540-4 (Version None)
Quarter: 2006Q2

REPORT INFORMATION
  Report Type: 
  Country: None (occurrence: None)
  Receive Date: 20060628
  Receipt Date: 20060620
  Transmission Date: 20061013
  Serious: Yes (Hospitalization)
  Sender: FDA-Public Use
  Company Number: US-KINGPHARMUSA00001-K200600799

PATIENT
  Age: 75 Year
  Sex: Female

DRUGS (2)
  1. ALTACE [Suspect]
     Indication: HYPERTENSION
     Dosage: UNK, QD
     Route: 048
     Dates: start: 20030101, end: 20050601
  2. AVAPRO [Concomitant]
     Indication: BLOOD PRESSURE

REACTIONS (2)
  - DRUG INEFFECTIVE [None]
  - GASTRITIS [None]
